FAERS Safety Report 21271713 (Version 1)
Quarter: 2022Q3

REPORT INFORMATION
  Report Type: Report from Study
  Country: CN (occurrence: CN)
  Receive Date: 20220830
  Receipt Date: 20220830
  Transmission Date: 20221027
  Serious: Yes (Death)
  Sender: FDA-Public Use
  Company Number: CN-ELI_LILLY_AND_COMPANY-CN202208013797

PATIENT

DRUGS (4)
  1. PEMETREXED [Suspect]
     Active Substance: PEMETREXED
     Indication: Non-small cell lung cancer
     Dosage: 500 MG/M2, UNKNOWN
     Route: 065
  2. SINTILIMAB [Suspect]
     Active Substance: SINTILIMAB
     Indication: Non-small cell lung cancer
     Dosage: 200 MG, UNKNOWN
     Route: 065
  3. BEVACIZUMAB [Suspect]
     Active Substance: BEVACIZUMAB
     Indication: Non-small cell lung cancer
     Dosage: 15 MG/KG, UNKNOWN
     Route: 065
  4. CISPLATIN [Suspect]
     Active Substance: CISPLATIN
     Indication: Non-small cell lung cancer
     Dosage: 75 MG/M2, UNKNOWN
     Route: 065

REACTIONS (1)
  - Death [Fatal]
